FAERS Safety Report 10098958 (Version 1)
Quarter: 2014Q2

REPORT INFORMATION
  Report Type: Spontaneous
  Country: FR (occurrence: FR)
  Receive Date: 20140423
  Receipt Date: 20140423
  Transmission Date: 20141212
  Serious: Yes (Other)
  Sender: FDA-Public Use
  Company Number: PHHY2014FR046693

PATIENT
  Age: 35 Year
  Sex: Male

DRUGS (5)
  1. QUETIAPINE [Suspect]
     Indication: SCHIZOAFFECTIVE DISORDER
     Dosage: 200 MG, QD
  2. QUETIAPINE [Interacting]
     Dosage: 400 MG, QD
  3. QUETIAPINE [Interacting]
     Dosage: 600 MG, QD
  4. ZUCLOPENTHIXOL [Interacting]
     Dosage: 100 MG, QD
  5. LITHIUM [Concomitant]
     Indication: MANIA
     Dosage: 800 MG

REACTIONS (3)
  - Aggression [Recovered/Resolved]
  - Psychomotor hyperactivity [Recovered/Resolved]
  - Drug interaction [Unknown]
